FAERS Safety Report 6082790-8 (Version None)
Quarter: 2009Q1

REPORT INFORMATION
  Report Type: 
  Country: None (occurrence: None)
  Receive Date: 20090202
  Receipt Date: 20070313
  Transmission Date: 20090719
  Serious: Yes (Other)
  Sender: FDA-Public Use
  Company Number: 261675

PATIENT
  Age: 49 Year
  Sex: Female
  Weight: 109.8 kg

DRUGS (5)
  1. NOVOLOG [Suspect]
     Indication: INSULIN-REQUIRING TYPE 2 DIABETES MELLITUS
     Dosage: 6 IU, QD; 2 IU IN A.M. + 4 IU AT LUNCH, SUBCUTANEOUS
     Route: 058
     Dates: start: 20070310, end: 20070311
  2. LANTUS [Concomitant]
  3. GLUCOTROL XL [Concomitant]
  4. DIOVAN [Concomitant]
  5. ACIPHEX [Concomitant]

REACTIONS (1)
  - HYPERSENSITIVITY [None]
